FAERS Safety Report 10501948 (Version 2)
Quarter: 2014Q4

REPORT INFORMATION
  Report Type: Spontaneous
  Country: CH (occurrence: None)
  Receive Date: 20141003
  Receipt Date: 20141110
  Transmission Date: 20150528
  Serious: Yes (Death)
  Sender: FDA-Public Use
  Company Number: 20140622

PATIENT
  Sex: Male
  Weight: 2.62 kg

DRUGS (1)
  1. FERINJECT [Suspect]
     Active Substance: FERRIC CARBOXYMALTOSE
     Indication: FOETAL EXPOSURE DURING PREGNANCY
     Dosage: 2 DOSAGE FORMS , 1  IN 1 TOTAL TRANSPLACENTAL
     Route: 064
     Dates: start: 20140806

REACTIONS (2)
  - Foetal death [None]
  - Maternal drugs affecting foetus [None]

NARRATIVE: CASE EVENT DATE: 20140806
